FAERS Safety Report 5589840-3 (Version None)
Quarter: 2008Q1

REPORT INFORMATION
  Report Type: 
  Country: None (occurrence: None)
  Receive Date: 20080114
  Receipt Date: 20080107
  Transmission Date: 20080703
  Serious: Yes (Hospitalization)
  Sender: FDA-Public Use
  Company Number: GB-MERCK-0801GBR00029

PATIENT
  Age: 56 Year
  Sex: Female

DRUGS (5)
  1. HYDROCORTONE [Suspect]
     Route: 042
  2. RANITIDINE [Suspect]
     Indication: EPIGASTRIC DISCOMFORT
     Route: 041
  3. RANITIDINE [Suspect]
     Indication: PANCREATITIS
     Route: 041
  4. EPINEPHRINE [Concomitant]
     Route: 030
  5. OXYGEN [Concomitant]
     Route: 065

REACTIONS (2)
  - CARDIO-RESPIRATORY ARREST [None]
  - DRUG INEFFECTIVE [None]
